FAERS Safety Report 20194987 (Version 1)
Quarter: 2021Q4

REPORT INFORMATION
  Report Type: Report from Study
  Country: CA (occurrence: CA)
  Receive Date: 20211216
  Receipt Date: 20211216
  Transmission Date: 20220303
  Serious: Yes (Other)
  Sender: FDA-Public Use
  Company Number: CA-SHIRE-CA202007396

PATIENT
  Age: 56 Year
  Sex: Female
  Weight: 48.98 kg

DRUGS (2)
  1. HUMAN IMMUNOGLOBULIN G [Suspect]
     Active Substance: HUMAN IMMUNOGLOBULIN G
     Indication: Secondary immunodeficiency
     Dosage: 5 GRAM, 1X/WEEK
     Route: 058
     Dates: start: 20191204
  2. HUMAN IMMUNOGLOBULIN G [Suspect]
     Active Substance: HUMAN IMMUNOGLOBULIN G
     Indication: Plasma cell myeloma
     Dosage: 7 GRAM, 1/WEEK
     Route: 058

REACTIONS (9)
  - Pneumonia [Recovered/Resolved]
  - Bacterial infection [Unknown]
  - Abdominal distension [Unknown]
  - Underweight [Unknown]
  - Nausea [Unknown]
  - Headache [Recovered/Resolved]
  - Infusion site pain [Recovered/Resolved]
  - Infusion site swelling [Recovered/Resolved]
  - Infusion site bruising [Unknown]

NARRATIVE: CASE EVENT DATE: 20200302
